FAERS Safety Report 9171405 (Version 1)
Quarter: 2013Q1

REPORT INFORMATION
  Report Type: Spontaneous
  Country: US (occurrence: None)
  Receive Date: 20130318
  Receipt Date: 20130318
  Transmission Date: 20140127
  Serious: No
  Sender: FDA-Public Use
  Company Number: None

PATIENT
  Age: 52 Year
  Sex: Female
  Weight: 63 kg

DRUGS (1)
  1. CALDOLOR [Suspect]
     Indication: PAIN
     Route: 041
     Dates: start: 20130208, end: 20130208

REACTIONS (3)
  - Infusion site discomfort [None]
  - Infusion site oedema [None]
  - Infusion site pain [None]
